FAERS Safety Report 19255757 (Version 9)
Quarter: 2022Q1

REPORT INFORMATION
  Report Type: Report from Study
  Country: BE (occurrence: BE)
  Receive Date: 20210513
  Receipt Date: 20220202
  Transmission Date: 20220423
  Serious: Yes (Hospitalization)
  Sender: FDA-Public Use
  Company Number: NVSC2021BE102217

PATIENT
  Age: 21 Year
  Sex: Female
  Weight: 81 kg

DRUGS (36)
  1. CRIZANLIZUMAB [Suspect]
     Active Substance: CRIZANLIZUMAB
     Indication: Sickle cell disease
     Dosage: 5 MG/KG
     Route: 042
     Dates: start: 20210504, end: 20210504
  2. CRIZANLIZUMAB [Suspect]
     Active Substance: CRIZANLIZUMAB
     Dosage: 5 MG/KG
     Route: 042
     Dates: start: 20210518, end: 20210518
  3. CRIZANLIZUMAB [Suspect]
     Active Substance: CRIZANLIZUMAB
     Dosage: UNK
     Route: 042
     Dates: start: 20210615, end: 20210615
  4. CRIZANLIZUMAB [Suspect]
     Active Substance: CRIZANLIZUMAB
     Dosage: UNK
     Route: 042
     Dates: start: 20210713, end: 20210713
  5. CRIZANLIZUMAB [Suspect]
     Active Substance: CRIZANLIZUMAB
     Dosage: 5 MG/KG
     Route: 042
     Dates: start: 20210817, end: 20210817
  6. FOLVIT [Concomitant]
     Indication: Sickle cell disease
     Dosage: UNK
     Route: 065
     Dates: start: 20050321
  7. TRAZODONE [Concomitant]
     Active Substance: TRAZODONE HYDROCHLORIDE
     Indication: Depression
     Dosage: UNK
     Route: 065
     Dates: start: 20210416, end: 20210419
  8. ACETAMINOPHEN [Concomitant]
     Active Substance: ACETAMINOPHEN
     Indication: Sickle cell disease
     Dosage: UNK
     Route: 065
     Dates: start: 20000801
  9. ACETAMINOPHEN [Concomitant]
     Active Substance: ACETAMINOPHEN
     Indication: Premedication
     Dosage: UNK
     Route: 065
     Dates: start: 20210518, end: 20210518
  10. ACETAMINOPHEN [Concomitant]
     Active Substance: ACETAMINOPHEN
     Indication: Sickle cell anaemia with crisis
     Dosage: UNK
     Route: 065
     Dates: start: 20210523, end: 20210528
  11. ACETAMINOPHEN [Concomitant]
     Active Substance: ACETAMINOPHEN
     Indication: Analgesic therapy
     Dosage: UNK
     Route: 065
     Dates: start: 20210524, end: 20210531
  12. ACETAMINOPHEN [Concomitant]
     Active Substance: ACETAMINOPHEN
     Indication: Analgesic therapy
     Dosage: UNK
     Route: 065
     Dates: start: 20210615, end: 20210615
  13. ACETAMINOPHEN [Concomitant]
     Active Substance: ACETAMINOPHEN
     Indication: Analgesic therapy
     Dosage: UNK
     Route: 065
     Dates: start: 20210713, end: 20210713
  14. ACETAMINOPHEN [Concomitant]
     Active Substance: ACETAMINOPHEN
     Dosage: UNK
     Route: 065
     Dates: start: 20210720, end: 20210723
  15. ACETAMINOPHEN [Concomitant]
     Active Substance: ACETAMINOPHEN
     Dosage: UNK
     Route: 065
     Dates: start: 20210817, end: 20210817
  16. PANTOPRAZOLE SODIUM [Concomitant]
     Active Substance: PANTOPRAZOLE SODIUM
     Indication: Sickle cell anaemia with crisis
     Dosage: UNK
     Route: 065
     Dates: start: 20210524, end: 20210531
  17. KETOROLAC [Concomitant]
     Active Substance: KETOROLAC TROMETHAMINE
     Indication: Sickle cell anaemia with crisis
     Dosage: UNK
     Route: 065
     Dates: start: 20210524, end: 20210528
  18. KETOROLAC [Concomitant]
     Active Substance: KETOROLAC TROMETHAMINE
     Indication: Analgesic therapy
     Dosage: UNK
     Route: 065
     Dates: start: 20210713, end: 20210713
  19. KETOROLAC [Concomitant]
     Active Substance: KETOROLAC TROMETHAMINE
     Indication: Analgesic therapy
     Dosage: UNK
     Route: 065
     Dates: start: 20210719, end: 20210719
  20. KETOROLAC [Concomitant]
     Active Substance: KETOROLAC TROMETHAMINE
     Dosage: UNK
     Route: 065
     Dates: start: 20210817, end: 20210817
  21. DICLOFENAC [Concomitant]
     Active Substance: DICLOFENAC
     Indication: Sickle cell anaemia with crisis
     Dosage: UNK
     Route: 065
     Dates: start: 20210528, end: 20210531
  22. TRAMADOL [Concomitant]
     Active Substance: TRAMADOL
     Indication: Sickle cell anaemia with crisis
     Dosage: UNK
     Route: 065
     Dates: start: 20210529, end: 20210529
  23. TRAMADOL [Concomitant]
     Active Substance: TRAMADOL
     Indication: Pain
     Dosage: UNK
     Route: 065
     Dates: start: 20210713, end: 20210713
  24. TRAMADOL [Concomitant]
     Active Substance: TRAMADOL
     Dosage: UNK
     Route: 065
     Dates: start: 20210719, end: 20210719
  25. TRAMADOL [Concomitant]
     Active Substance: TRAMADOL
     Dosage: UNK
     Route: 065
     Dates: start: 20210722, end: 20210723
  26. MORPHINE [Concomitant]
     Active Substance: MORPHINE
     Indication: Sickle cell anaemia with crisis
     Dosage: UNK
     Route: 065
     Dates: start: 20210523, end: 20210523
  27. MORPHINE [Concomitant]
     Active Substance: MORPHINE
     Dosage: UNK
     Route: 065
     Dates: start: 20210524, end: 20210528
  28. MORPHINE [Concomitant]
     Active Substance: MORPHINE
     Dosage: UNK
     Route: 065
     Dates: start: 20210719, end: 20210719
  29. MORPHINE [Concomitant]
     Active Substance: MORPHINE
     Dosage: UNK
     Route: 065
     Dates: start: 20210719, end: 20210722
  30. HYDREA [Concomitant]
     Active Substance: HYDROXYUREA
     Indication: Sickle cell disease
     Dosage: UNK
     Route: 065
     Dates: start: 20030315
  31. DROPERIDOL [Concomitant]
     Active Substance: DROPERIDOL
     Indication: Sickle cell anaemia with crisis
     Dosage: UNK
     Route: 065
     Dates: start: 20210524, end: 20210528
  32. DROPERIDOL [Concomitant]
     Active Substance: DROPERIDOL
     Dosage: UNK
     Route: 065
     Dates: start: 20210719, end: 20210722
  33. IBUPROFEN [Concomitant]
     Active Substance: IBUPROFEN
     Indication: Sickle cell anaemia with crisis
     Dosage: UNK
     Route: 065
     Dates: start: 20210722, end: 20210723
  34. ALIZAPRIDE [Concomitant]
     Active Substance: ALIZAPRIDE
     Indication: Prophylaxis of nausea and vomiting
     Dosage: UNK
     Route: 065
     Dates: start: 20210713, end: 20210713
  35. ALIZAPRIDE HYDROCHLORIDE [Concomitant]
     Active Substance: ALIZAPRIDE HYDROCHLORIDE
     Indication: Prophylaxis of nausea and vomiting
     Dosage: UNK
     Route: 065
     Dates: start: 20210504, end: 20210504
  36. CLONIDINE [Concomitant]
     Active Substance: CLONIDINE
     Indication: Sickle cell anaemia with crisis
     Dosage: UNK
     Route: 065
     Dates: start: 20210818, end: 20210818

REACTIONS (4)
  - Pain [Recovered/Resolved]
  - Pain [Recovered/Resolved]
  - Back pain [Recovered/Resolved]
  - Pain in extremity [Recovered/Resolved]

NARRATIVE: CASE EVENT DATE: 20210504
